FAERS Safety Report 6651523-6 (Version None)
Quarter: 2010Q1

REPORT INFORMATION
  Report Type: 
  Country: None (occurrence: None)
  Receive Date: 20100325
  Receipt Date: 20100323
  Transmission Date: 20100710
  Serious: Yes (Congenital Anomaly, Other)
  Sender: FDA-Public Use
  Company Number: A0803847A

PATIENT
  Sex: Male

DRUGS (3)
  1. LAMICTAL CD [Suspect]
     Indication: EPILEPSY
     Dosage: 200MG PER DAY
     Dates: start: 20051001, end: 20060201
  2. LAMICTAL CD [Suspect]
     Dosage: 450MG PER DAY
     Dates: start: 20060201
  3. LITHIUM CARBONATE [Suspect]
     Indication: DRUG USE FOR UNKNOWN INDICATION

REACTIONS (4)
  - DRUG EXPOSURE DURING PREGNANCY [None]
  - HEREDITARY DISORDER [None]
  - HYPOSPADIAS [None]
  - MECONIUM IN AMNIOTIC FLUID [None]
